FAERS Safety Report 11639618 (Version 2)
Quarter: 2017Q2

REPORT INFORMATION
  Report Type: Report from Study
  Country: US (occurrence: US)
  Receive Date: 20151019
  Receipt Date: 20170508
  Transmission Date: 20170829
  Serious: No
  Sender: FDA-Public Use
  Company Number: US-AMGEN-USASL2015108171

PATIENT
  Age: 60 Year
  Sex: Female

DRUGS (1)
  1. ENBREL [Suspect]
     Active Substance: ETANERCEPT
     Indication: RHEUMATOID ARTHRITIS
     Dosage: 50 MG, QWK
     Route: 065
     Dates: end: 2015

REACTIONS (1)
  - Drug ineffective [Unknown]
